FAERS Safety Report 7739152-4 (Version None)
Quarter: 2011Q3

REPORT INFORMATION
  Report Type: 
  Country: None (occurrence: None)
  Receive Date: 20110909
  Receipt Date: 20110830
  Transmission Date: 20111222
  Serious: Yes (Hospitalization)
  Sender: FDA-Public Use
  Company Number: FR-AMGEN-FRASP2011044166

PATIENT
  Age: 53 Year
  Sex: Male

DRUGS (8)
  1. KEPPRA [Suspect]
  2. CITALOPRAM BASICS [Suspect]
     Dosage: 20 UNK, UNK
     Route: 048
  3. EUPRESSYL                          /00631801/ [Suspect]
     Dosage: 90 MG, QD
     Route: 048
     Dates: start: 20110529
  4. CALCIUM CARBONATE [Suspect]
     Dosage: UNK
     Route: 048
  5. RENAGEL [Suspect]
     Dosage: UNK UNK, QD
     Route: 048
  6. ARANESP [Suspect]
     Indication: PRODUCT USED FOR UNKNOWN INDICATION
     Dosage: 50 MUG, Q2WK
     Route: 058
  7. KAYEXALATE [Suspect]
     Dosage: 15 G, 3 TIMES/WK
     Route: 048
     Dates: start: 20110603
  8. PREDNISONE [Suspect]
     Dosage: 30 MG/KG, QD
     Route: 048
     Dates: start: 20110501

REACTIONS (3)
  - THROMBOCYTOPENIA [None]
  - ANAEMIA [None]
  - CONDITION AGGRAVATED [None]
